FAERS Safety Report 4424624-0 (Version None)
Quarter: 2004Q3

REPORT INFORMATION
  Report Type: 
  Country: None (occurrence: None)
  Receive Date: 20040809
  Receipt Date: 20040726
  Transmission Date: 20050211
  Serious: Yes (Hospitalization)
  Sender: FDA-Public Use
  Company Number: US-JNJFOC-20040707031

PATIENT
  Age: 68 Year
  Sex: Female

DRUGS (13)
  1. INFLIXIMAB (INFLIXIMAB, RECOMBINANT) LYOPHILIZED POWDER [Suspect]
     Indication: RHEUMATOID ARTHRITIS
     Dosage: INTRAVENOUS
     Route: 042
     Dates: start: 20000321, end: 20010701
  2. METHOTREXATE [Concomitant]
  3. NEXIUM [Concomitant]
  4. VIOXX [Concomitant]
  5. FOLIC ACID [Concomitant]
  6. PREDNISONE [Concomitant]
  7. ASPERCREME (TROLAMINE SALICYLATE) [Concomitant]
  8. ZOLOFT [Concomitant]
  9. DARVOCET-N 100 [Concomitant]
  10. INDERAL [Concomitant]
  11. POTASSIUM [Concomitant]
  12. CALTRATE (CALCIUM CARBONATE) [Concomitant]
  13. MULTI-VITAMIN [Concomitant]

REACTIONS (3)
  - GALLBLADDER PERFORATION [None]
  - RENAL FAILURE [None]
  - SEPSIS [None]
